FAERS Safety Report 17147233 (Version 3)
Quarter: 2020Q1

REPORT INFORMATION
  Report Type: Spontaneous
  Country: US (occurrence: US)
  Receive Date: 20191212
  Receipt Date: 20200129
  Transmission Date: 20200409
  Serious: No
  Sender: FDA-Public Use
  Company Number: US-ELI_LILLY_AND_COMPANY-US201911010669

PATIENT
  Age: 50 Year
  Sex: Female

DRUGS (1)
  1. BAQSIMI [Suspect]
     Active Substance: GLUCAGON
     Indication: BLOOD GLUCOSE DECREASED
     Dosage: 1 DOSAGE FORM, SINGLE
     Route: 065
     Dates: start: 20191121, end: 20191121

REACTIONS (5)
  - Ear discomfort [Unknown]
  - Periorbital swelling [Unknown]
  - Facial pain [Recovered/Resolved]
  - Paranasal sinus discomfort [Unknown]
  - Nasal discomfort [Recovered/Resolved]
